FAERS Safety Report 9585456 (Version 2)
Quarter: 2013Q4

REPORT INFORMATION
  Report Type: Spontaneous
  Country: CA (occurrence: CA)
  Receive Date: 20131003
  Receipt Date: 20131115
  Transmission Date: 20140711
  Serious: Yes (Other)
  Sender: FDA-Public Use
  Company Number: CA-AMGEN-CANSP2013068408

PATIENT
  Age: 56 Year
  Sex: Female
  Weight: 46.26 kg

DRUGS (1)
  1. PROLIA [Suspect]
     Indication: OSTEOPOROSIS
     Dosage: 60 MG, Q6MO
     Route: 058
     Dates: start: 20121128, end: 20130326

REACTIONS (2)
  - Angioedema [Recovering/Resolving]
  - Rash [Unknown]
